FAERS Safety Report 8834280 (Version 2)
Quarter: 2012Q4

REPORT INFORMATION
  Report Type: 
  Country: IT (occurrence: IT)
  Receive Date: 20121010
  Receipt Date: 20121019
  Transmission Date: 20130627
  Serious: Yes (Hospitalization, Other)
  Sender: FDA-Public Use
  Company Number: IT-ELI_LILLY_AND_COMPANY-IT201210000021

PATIENT
  Sex: Male

DRUGS (4)
  1. ZYPREXA [Suspect]
     Indication: BIPOLAR DISORDER
     Dosage: 1 DF, qd
     Route: 048
  2. ZYPREXA [Suspect]
     Dosage: 28 DF, other
  3. CYMBALTA [Suspect]
     Indication: BIPOLAR DISORDER
     Dosage: 1 DF, qd
  4. CYMBALTA [Suspect]
     Dosage: 15 DF, other

REACTIONS (6)
  - Intentional overdose [Recovered/Resolved]
  - Sopor [Recovered/Resolved]
  - Bradyphrenia [Recovered/Resolved]
  - Suicide attempt [Recovered/Resolved]
  - Bradykinesia [Recovered/Resolved]
  - Off label use [Unknown]
